FAERS Safety Report 6227367-6 (Version None)
Quarter: 2009Q2

REPORT INFORMATION
  Report Type: 
  Country: None (occurrence: None)
  Receive Date: 20090610
  Receipt Date: 20090525
  Transmission Date: 20091009
  Serious: Yes (Hospitalization)
  Sender: FDA-Public Use
  Company Number: DSA_33788_2009

PATIENT
  Age: 71 Year
  Sex: Female

DRUGS (9)
  1. DILTIAZEM HCL [Suspect]
     Indication: DRUG USE FOR UNKNOWN INDICATION
     Dosage: 300 MG QD, ORAL (300 MG QD ORAL)
     Route: 048
     Dates: start: 20030101, end: 20060801
  2. DILTIAZEM HCL [Suspect]
     Indication: DRUG USE FOR UNKNOWN INDICATION
     Dosage: 300 MG QD, ORAL (300 MG QD ORAL)
     Route: 048
     Dates: start: 20060801
  3. PAROXETINE HCL [Suspect]
     Indication: DEPRESSION
     Dosage: 60 MG QD ORAL
     Route: 048
     Dates: start: 20060718, end: 20060801
  4. TRIMETAZIDINE [Concomitant]
  5. ACETYLSALICYLIC LYSINE [Concomitant]
  6. ROSUVASTATINE [Concomitant]
  7. LATANOPROST [Concomitant]
  8. ALPRAZOLAM [Concomitant]
  9. TIANEPTINE [Concomitant]

REACTIONS (6)
  - CYTOLYTIC HEPATITIS [None]
  - DEPRESSION [None]
  - KLEBSIELLA INFECTION [None]
  - MORGANELLA INFECTION [None]
  - PLATELET COUNT INCREASED [None]
  - TOXIC EPIDERMAL NECROLYSIS [None]
